FAERS Safety Report 5587977-6 (Version None)
Quarter: 2008Q1

REPORT INFORMATION
  Report Type: 
  Country: None (occurrence: None)
  Receive Date: 20080111
  Receipt Date: 20080104
  Transmission Date: 20080703
  Serious: No
  Sender: FDA-Public Use
  Company Number: US-BAYER-200810341NA

PATIENT
  Age: 33 Year
  Sex: Female

DRUGS (3)
  1. TRI-LEVLEN 28 [Suspect]
     Indication: CONTRACEPTION
     Dates: start: 20020101, end: 20070901
  2. FOLIC ACID [Concomitant]
  3. SEASONALE [Concomitant]
     Dates: start: 20070901, end: 20071201

REACTIONS (2)
  - PAIN IN EXTREMITY [None]
  - THROMBOSIS [None]
